FAERS Safety Report 7986864-3 (Version None)
Quarter: 2011Q4

REPORT INFORMATION
  Report Type: 
  Country: None (occurrence: None)
  Receive Date: 20111216
  Receipt Date: 20110301
  Transmission Date: 20120403
  Serious: No
  Sender: FDA-Public Use
  Company Number: US-BRISTOL-MYERS SQUIBB COMPANY-15579576

PATIENT
  Age: 59 Year
  Sex: Female

DRUGS (8)
  1. TRILIPIX [Concomitant]
  2. OMEPRAZOLE [Concomitant]
  3. SIMVASTATIN [Concomitant]
  4. ABILIFY [Suspect]
     Indication: BIPOLAR DISORDER
     Dates: start: 20101001
  5. LOVAZA [Concomitant]
  6. PROPRANOLOL [Concomitant]
  7. COZAAR [Concomitant]
  8. DEPAKOTE [Concomitant]

REACTIONS (2)
  - TREMOR [None]
  - GAIT DISTURBANCE [None]
